FAERS Safety Report 18523222 (Version 6)
Quarter: 2021Q2

REPORT INFORMATION
  Report Type: Report from Study
  Country: US (occurrence: US)
  Receive Date: 20201119
  Receipt Date: 20210420
  Transmission Date: 20210717
  Serious: Yes (Other)
  Sender: FDA-Public Use
  Company Number: US-PFIZER INC-2020439441

PATIENT
  Age: 70 Year
  Sex: Female

DRUGS (4)
  1. IBRANCE [Suspect]
     Active Substance: PALBOCICLIB
     Dosage: 125 MG, CYCLIC (125 MG DAILY FOR 21 DAYS AND OFF 7 DAYS)
     Route: 048
     Dates: start: 20201224, end: 20210310
  2. IBRANCE [Suspect]
     Active Substance: PALBOCICLIB
     Dosage: 100 MG, CYCLIC (DAILY FOR 21 DAYS ON AND OFF 7 DAYS)
     Route: 048
     Dates: start: 20210318
  3. IBRANCE [Suspect]
     Active Substance: PALBOCICLIB
     Indication: BREAST CANCER FEMALE
     Dosage: 125 MG, CYCLIC (DAILY FOR 21 DAYS AND OFF 7 DAYS)
     Route: 048
     Dates: start: 20201015
  4. ANASTROZOLE. [Concomitant]
     Active Substance: ANASTROZOLE
     Indication: BREAST CANCER
     Dosage: UNK, DAILY

REACTIONS (20)
  - Rhinorrhoea [Unknown]
  - Epistaxis [Not Recovered/Not Resolved]
  - Trichorrhexis [Unknown]
  - Haemoptysis [Unknown]
  - Alopecia [Unknown]
  - Asthenia [Recovering/Resolving]
  - Facial asymmetry [Unknown]
  - Weight decreased [Unknown]
  - Pain [Unknown]
  - Full blood count decreased [Unknown]
  - Disease recurrence [Unknown]
  - Otorrhoea [Unknown]
  - Back pain [Unknown]
  - Haematochezia [Recovered/Resolved]
  - Increased upper airway secretion [Unknown]
  - Decreased appetite [Unknown]
  - Fatigue [Recovering/Resolving]
  - Auditory disorder [Unknown]
  - Dry skin [Not Recovered/Not Resolved]
  - Skin discolouration [Unknown]

NARRATIVE: CASE EVENT DATE: 2020
